FAERS Safety Report 8951354 (Version 1)
Quarter: 2012Q4

REPORT INFORMATION
  Report Type: 
  Country: US (occurrence: US)
  Receive Date: 20121207
  Receipt Date: 20121207
  Transmission Date: 20130627
  Serious: No
  Sender: FDA-Public Use
  Company Number: US-ROXANE LABORATORIES, INC.-2012-RO-02484RO

PATIENT
  Age: 71 Year

DRUGS (1)
  1. CODEINE SULFATE [Suspect]

REACTIONS (2)
  - Rash [Unknown]
  - Nausea [Unknown]
